FAERS Safety Report 5877957-5 (Version None)
Quarter: 2008Q3

REPORT INFORMATION
  Report Type: 
  Country: None (occurrence: None)
  Receive Date: 20080911
  Receipt Date: 20080905
  Transmission Date: 20090109
  Serious: Yes (Other)
  Sender: FDA-Public Use
  Company Number: B0536616A

PATIENT
  Age: 52 Year
  Sex: Female

DRUGS (1)
  1. LAMIVUDINE [Suspect]
     Route: 048
     Dates: start: 20040303

REACTIONS (3)
  - DIARRHOEA [None]
  - RASH [None]
  - SWELLING FACE [None]
